FAERS Safety Report 8263998-X (Version None)
Quarter: 2012Q2

REPORT INFORMATION
  Report Type: 
  Country: None (occurrence: None)
  Receive Date: 20120406
  Receipt Date: 20120327
  Transmission Date: 20120825
  Serious: No
  Sender: FDA-Public Use
  Company Number: US-BIOGENIDEC-2012BI011739

PATIENT
  Sex: Female

DRUGS (4)
  1. AVONEX [Suspect]
     Indication: PRODUCT USED FOR UNKNOWN INDICATION
     Route: 030
  2. BETASERON [Concomitant]
     Route: 058
  3. IBUPROFEN TABLETS [Concomitant]
     Indication: PREMEDICATION
  4. AMPYRA [Concomitant]
     Dates: start: 20100401

REACTIONS (3)
  - FATIGUE [None]
  - DIZZINESS [None]
  - INJECTION SITE CALCIFICATION [None]
